FAERS Safety Report 12526679 (Version 1)
Quarter: 2016Q3

REPORT INFORMATION
  Report Type: Spontaneous
  Country: IT (occurrence: IT)
  Receive Date: 20160705
  Receipt Date: 20160705
  Transmission Date: 20161109
  Serious: Yes (Other)
  Sender: FDA-Public Use
  Company Number: IT-CIPLA LTD.-2016IT08250

PATIENT

DRUGS (3)
  1. SODIUM VALPROATE [Suspect]
     Active Substance: VALPROATE SODIUM
     Indication: PSYCHOTIC DISORDER
     Dosage: 900 MG, QD
     Route: 048
  2. PAROXETINE. [Suspect]
     Active Substance: PAROXETINE
     Indication: MOOD ALTERED
     Dosage: 20 MG, QD
     Route: 048
  3. LEVETIRACETAM. [Suspect]
     Active Substance: LEVETIRACETAM
     Indication: PSYCHOTIC DISORDER
     Dosage: 900 MG, QD
     Route: 048

REACTIONS (5)
  - Dysphonia [Recovering/Resolving]
  - Cerebral congestion [Recovering/Resolving]
  - Pleurothotonus [Recovering/Resolving]
  - Gait disturbance [Recovering/Resolving]
  - Hyperreflexia [Recovering/Resolving]
